FAERS Safety Report 8780372 (Version 1)
Quarter: 2012Q4

REPORT INFORMATION
  Report Type: Spontaneous
  Country: US (occurrence: None)
  Receive Date: 20120905
  Receipt Date: 20120905
  Transmission Date: 20130627
  Serious: Yes (Other)
  Sender: FDA-Public Use
  Company Number: None

PATIENT
  Age: 54 Year
  Sex: Male
  Weight: 66.23 kg

DRUGS (2)
  1. CYMBALTA 30 MG LILLY [Suspect]
     Indication: FIBROMYALGIA
     Dosage: One daily
     Dates: start: 20120831, end: 20120901
  2. CYMBALTA 30 MG LILLY [Suspect]
     Indication: NERVE PAIN
     Dosage: One daily
     Dates: start: 20120831, end: 20120901

REACTIONS (8)
  - Dizziness [None]
  - Nervousness [None]
  - Feeling abnormal [None]
  - Balance disorder [None]
  - Feeling jittery [None]
  - Tremor [None]
  - Nausea [None]
  - Cold sweat [None]
